FAERS Safety Report 7824295 (Version 3)
Quarter: 2013Q1

REPORT INFORMATION
  Report Type: Spontaneous
  Country: US (occurrence: US)
  Receive Date: 20110224
  Receipt Date: 20130325
  Transmission Date: 20140127
  Serious: No
  Sender: FDA-Public Use
  Company Number: US-BIOGENIDEC-2011BI006145

PATIENT
  Sex: Female

DRUGS (2)
  1. TYSABRI [Suspect]
     Indication: MULTIPLE SCLEROSIS
     Route: 042
     Dates: start: 20071105, end: 20090108
  2. TYSABRI [Suspect]
     Indication: MULTIPLE SCLEROSIS
     Route: 042
     Dates: start: 20101220

REACTIONS (10)
  - Sepsis [Unknown]
  - Dysuria [Unknown]
  - Memory impairment [Unknown]
  - Decreased immune responsiveness [Unknown]
  - Adverse event [Unknown]
  - Loss of control of legs [Unknown]
  - Bronchitis [Unknown]
  - Sinusitis [Unknown]
  - Alopecia [Not Recovered/Not Resolved]
  - Drug ineffective [Not Recovered/Not Resolved]
